FAERS Safety Report 25211615 (Version 3)
Quarter: 2025Q4

REPORT INFORMATION
  Report Type: Report from Study
  Country: GB (occurrence: GB)
  Receive Date: 20250418
  Receipt Date: 20251013
  Transmission Date: 20260118
  Serious: Yes (Hospitalization, Other)
  Sender: INSMED
  Company Number: GB-INSMED-2025-00973-GBAA

PATIENT
  Sex: Female

DRUGS (3)
  1. ARIKAYCE [Suspect]
     Active Substance: AMIKACIN
     Indication: Mycobacterium avium complex infection
     Dosage: 590 MILLIGRAM, QD
     Route: 055
     Dates: start: 2025, end: 202503
  2. ARIKAYCE [Suspect]
     Active Substance: AMIKACIN
     Dosage: 590 MILLIGRAM, QOD
     Route: 055
     Dates: start: 202504, end: 20250817
  3. RIFAMPIN [Concomitant]
     Active Substance: RIFAMPIN
     Indication: Product used for unknown indication
     Dosage: UNK, UNK
     Route: 065

REACTIONS (6)
  - Hospitalisation [Unknown]
  - Chronic respiratory disease [Not Recovered/Not Resolved]
  - Asthma [Unknown]
  - Haemoptysis [Unknown]
  - Adverse drug reaction [Unknown]
  - Bronchospasm [Unknown]

NARRATIVE: CASE EVENT DATE: 20250101
